FAERS Safety Report 13390823 (Version 1)
Quarter: 2017Q1

REPORT INFORMATION
  Report Type: Spontaneous
  Country: US (occurrence: US)
  Receive Date: 20170331
  Receipt Date: 20170331
  Transmission Date: 20170429
  Serious: No
  Sender: FDA-Public Use
  Company Number: None

PATIENT

DRUGS (2)
  1. CISATRACURIUM BESYLATE CISATRACURIUM 200MG/20ML [Suspect]
     Active Substance: CISATRACURIUM BESYLATE
     Dosage: SINGLE USE VIAL
     Route: 042
  2. GENTAMICIN SULFATE GENTAMICIN 800MG/20ML [Suspect]
     Active Substance: GENTAMICIN SULFATE
     Dosage: IM OR IV  MULTIPLE DOSE VIAL
     Route: 030

REACTIONS (2)
  - Product packaging confusion [None]
  - Drug dispensing error [None]
